FAERS Safety Report 14023748 (Version 1)
Quarter: 2017Q3

REPORT INFORMATION
  Report Type: Spontaneous
  Country: FR (occurrence: FR)
  Receive Date: 20170929
  Receipt Date: 20170929
  Transmission Date: 20171128
  Serious: Yes (Hospitalization)
  Sender: FDA-Public Use
  Company Number: FR-PFIZER INC-2017416216

PATIENT
  Age: 79 Year
  Sex: Male

DRUGS (16)
  1. KARDEGIC [Concomitant]
     Active Substance: ASPIRIN LYSINE
  2. LANSOPRAZOLE. [Concomitant]
     Active Substance: LANSOPRAZOLE
  3. SPIRIVA [Concomitant]
     Active Substance: TIOTROPIUM BROMIDE MONOHYDRATE
  4. PERINDOPRIL [Concomitant]
     Active Substance: PERINDOPRIL
  5. BUTYLAMINO BENZOIC ACID (PK ANALYTE) [Concomitant]
  6. FRAGMINE [Concomitant]
     Active Substance: DALTEPARIN SODIUM
  7. LYRICA [Suspect]
     Active Substance: PREGABALIN
     Indication: NEURALGIA
     Dosage: 1 DF, 1X/DAY
     Route: 048
     Dates: start: 20170810
  8. TAHOR [Concomitant]
     Active Substance: ATORVASTATIN CALCIUM
  9. AMLODIPINE [Concomitant]
     Active Substance: AMLODIPINE BESYLATE
  10. BISOPROLOL [Concomitant]
     Active Substance: BISOPROLOL
  11. FUMARATE DISODIUM [Concomitant]
     Active Substance: DISODIUM FUMARATE
  12. HYDROCHLOROTHIAZIDE. [Concomitant]
     Active Substance: HYDROCHLOROTHIAZIDE
  13. MIANSERINE HCL [Suspect]
     Active Substance: MIANSERIN HYDROCHLORIDE
     Indication: DEPRESSION
     Dosage: 30 MG, 1X/DAY
     Route: 048
     Dates: start: 20170811, end: 20170812
  14. BACLOFEN. [Suspect]
     Active Substance: BACLOFEN
     Indication: MUSCLE SPASTICITY
     Dosage: 5 MG, 3X/DAY
     Route: 048
     Dates: start: 20170810, end: 20170811
  15. MOVICOL [Concomitant]
     Active Substance: POLYETHYLENE GLYCOL 3350\POTASSIUM CHLORIDE\SODIUM BICARBONATE\SODIUM CHLORIDE
  16. SYMBICORT [Concomitant]
     Active Substance: BUDESONIDE\FORMOTEROL FUMARATE DIHYDRATE

REACTIONS (5)
  - Psychomotor retardation [Unknown]
  - Condition aggravated [Unknown]
  - Miosis [Recovered/Resolved]
  - Facial paralysis [Unknown]
  - Confusional state [Recovered/Resolved]

NARRATIVE: CASE EVENT DATE: 20170811
